FAERS Safety Report 4512197-3 (Version None)
Quarter: 2004Q4

REPORT INFORMATION
  Report Type: 
  Country: None (occurrence: None)
  Receive Date: 20041123
  Receipt Date: 20041115
  Transmission Date: 20050328
  Serious: Yes (Disabling, Other)
  Sender: FDA-Public Use
  Company Number: 25611

PATIENT
  Age: 43 Year
  Sex: Male

DRUGS (1)
  1. ALDARA [Suspect]
     Indication: SKIN PAPILLOMA
     Dosage: TOPICAL
     Route: 061
     Dates: end: 20041004

REACTIONS (3)
  - ARTHRITIS [None]
  - NAIL DYSTROPHY [None]
  - PSORIASIS [None]
